FAERS Safety Report 20997498 (Version 2)
Quarter: 2025Q3

REPORT INFORMATION
  Report Type: Report from Study
  Country: EU (occurrence: EU)
  Receive Date: 20220623
  Receipt Date: 20250825
  Transmission Date: 20251020
  Serious: Yes (Death, Other)
  Sender: AUROBINDO
  Company Number: EU-AUROBINDO-AUR-APL-2022-021519

PATIENT
  Age: 41 Year
  Sex: Female

DRUGS (8)
  1. CITALOPRAM [Interacting]
     Active Substance: CITALOPRAM
     Indication: Product used for unknown indication
     Route: 065
  2. OLANZAPINE [Interacting]
     Active Substance: OLANZAPINE
     Indication: Product used for unknown indication
     Route: 065
  3. ESCITALOPRAM [Concomitant]
     Active Substance: ESCITALOPRAM OXALATE
     Indication: Product used for unknown indication
     Route: 065
  4. SULPIRIDE [Concomitant]
     Active Substance: SULPIRIDE
     Indication: Product used for unknown indication
     Route: 065
  5. OXAZEPAM [Concomitant]
     Active Substance: OXAZEPAM
     Indication: Product used for unknown indication
     Route: 065
  6. MORPHINE [Concomitant]
     Active Substance: MORPHINE
     Indication: Product used for unknown indication
     Route: 065
  7. CODEINE [Concomitant]
     Active Substance: CODEINE
     Indication: Product used for unknown indication
     Route: 065
  8. NALOXONE [Concomitant]
     Active Substance: NALOXONE
     Indication: Product used for unknown indication
     Route: 065

REACTIONS (3)
  - Electrocardiogram QT prolonged [Fatal]
  - Cardiac death [Fatal]
  - Drug interaction [Unknown]

NARRATIVE: CASE EVENT DATE: 20170101
